FAERS Safety Report 6149883-8 (Version None)
Quarter: 2009Q2

REPORT INFORMATION
  Report Type: 
  Country: None (occurrence: None)
  Receive Date: 20090407
  Receipt Date: 20090327
  Transmission Date: 20091009
  Serious: Yes (Life-Threatening, Hospitalization)
  Sender: FDA-Public Use
  Company Number: WAES 0804USA03296

PATIENT
  Age: 75 Year
  Sex: Female

DRUGS (17)
  1. CARBOPLATIN [Suspect]
     Indication: NON-SMALL CELL LUNG CANCER STAGE IV
     Dosage: 621 MG/1X IV 497.76 MG/1X IV 603 MG/1X IV
     Route: 042
     Dates: start: 20080222, end: 20080222
  2. CARBOPLATIN [Suspect]
     Indication: NON-SMALL CELL LUNG CANCER STAGE IV
     Dosage: 621 MG/1X IV 497.76 MG/1X IV 603 MG/1X IV
     Route: 042
     Dates: start: 20080313, end: 20080313
  3. CARBOPLATIN [Suspect]
     Indication: NON-SMALL CELL LUNG CANCER STAGE IV
     Dosage: 621 MG/1X IV 497.76 MG/1X IV 603 MG/1X IV
     Route: 042
     Dates: start: 20080403, end: 20080403
  4. PLACEBO (UNSPECIFIED) [Suspect]
     Indication: NON-SMALL CELL LUNG CANCER STAGE IV
     Dosage: PO
     Route: 048
  5. INFUSION (FORM) PACLITAXEL [Suspect]
     Indication: NON-SMALL CELL LUNG CANCER
     Dosage: 316 MG/1X IV 322 MG/1X IV 318 MG/1X IV
     Route: 042
     Dates: start: 20080222, end: 20080222
  6. INFUSION (FORM) PACLITAXEL [Suspect]
     Indication: NON-SMALL CELL LUNG CANCER
     Dosage: 316 MG/1X IV 322 MG/1X IV 318 MG/1X IV
     Route: 042
     Dates: start: 20080313, end: 20080313
  7. INFUSION (FORM) PACLITAXEL [Suspect]
     Indication: NON-SMALL CELL LUNG CANCER
     Dosage: 316 MG/1X IV 322 MG/1X IV 318 MG/1X IV
     Route: 042
     Dates: start: 20080403, end: 20080403
  8. CHLORPHENIRAMINE MALEATE [Concomitant]
  9. DEXAMETHASONE TAB [Concomitant]
  10. DIAZEPAM [Concomitant]
  11. GABAPENTIN [Concomitant]
  12. KETOPROFEN [Concomitant]
  13. ONDANSETRON [Concomitant]
  14. RANITIDINE [Concomitant]
  15. TRAMADOL HCL [Concomitant]
  16. CARBOPLATIN [Suspect]
     Indication: NON-SMALL CELL LUNG CANCER STAGE IV
     Dosage: SEE IMAGE
     Route: 042
     Dates: start: 20080313, end: 20080313
  17. CARBOPLATIN [Suspect]
     Indication: NON-SMALL CELL LUNG CANCER STAGE IV
     Dosage: SEE IMAGE
     Route: 042
     Dates: start: 20080403, end: 20080403

REACTIONS (23)
  - ABDOMINAL DISTENSION [None]
  - ANAEMIA [None]
  - BACK PAIN [None]
  - BLOOD ALKALINE PHOSPHATASE INCREASED [None]
  - CHEST PAIN [None]
  - DIARRHOEA [None]
  - DIZZINESS [None]
  - DRUG TOXICITY [None]
  - DYSPEPSIA [None]
  - FEBRILE NEUTROPENIA [None]
  - GASTRITIS [None]
  - GINGIVAL PAIN [None]
  - INFLUENZA [None]
  - INSOMNIA [None]
  - NAUSEA [None]
  - PAIN [None]
  - PLATELET COUNT DECREASED [None]
  - PNEUMONIA [None]
  - PROTEINURIA [None]
  - PRURITUS GENERALISED [None]
  - SEPTIC SHOCK [None]
  - URINARY TRACT INFECTION FUNGAL [None]
  - VOMITING [None]
